FAERS Safety Report 17047035 (Version 2)
Quarter: 2019Q4

REPORT INFORMATION
  Report Type: Spontaneous
  Country: US (occurrence: US)
  Receive Date: 20191119
  Receipt Date: 20191127
  Transmission Date: 20200122
  Serious: Yes (Death)
  Sender: FDA-Public Use
  Company Number: US-ACCORD-161201

PATIENT
  Age: 58 Year
  Sex: Female

DRUGS (11)
  1. LEVOTHYROXINE. [Concomitant]
     Active Substance: LEVOTHYROXINE
  2. CLONAZEPAM. [Concomitant]
     Active Substance: CLONAZEPAM
  3. PRAVASTATIN. [Concomitant]
     Active Substance: PRAVASTATIN
  4. OMEPRAZOLE. [Concomitant]
     Active Substance: OMEPRAZOLE
  5. ESCITALOPRAM [Concomitant]
     Active Substance: ESCITALOPRAM OXALATE
  6. CLOZAPINE. [Suspect]
     Active Substance: CLOZAPINE
     Indication: PRODUCT USED FOR UNKNOWN INDICATION
     Dosage: AT BEDTIME
     Dates: start: 201908, end: 201911
  7. GABAPENTIN. [Concomitant]
     Active Substance: GABAPENTIN
  8. LAMOTRIGINE. [Concomitant]
     Active Substance: LAMOTRIGINE
  9. BENZATROPINE [Concomitant]
     Active Substance: BENZTROPINE
  10. ELIQUIS [Concomitant]
     Active Substance: APIXABAN
  11. PARACETAMOL [Concomitant]
     Active Substance: ACETAMINOPHEN

REACTIONS (1)
  - Death [Fatal]

NARRATIVE: CASE EVENT DATE: 201911
